FAERS Safety Report 5873517-0 (Version None)
Quarter: 2008Q3

REPORT INFORMATION
  Report Type: 
  Country: None (occurrence: None)
  Receive Date: 20080908
  Receipt Date: 20080903
  Transmission Date: 20090109
  Serious: Yes (Hospitalization, Other)
  Sender: FDA-Public Use
  Company Number: CH-BRISTOL-MYERS SQUIBB COMPANY-14322200

PATIENT
  Age: 40 Year
  Sex: Female

DRUGS (4)
  1. VIDEX [Suspect]
     Indication: ACQUIRED IMMUNODEFICIENCY SYNDROME
     Dates: start: 19970514
  2. ZERIT [Suspect]
     Indication: ACQUIRED IMMUNODEFICIENCY SYNDROME
     Dates: start: 19970514
  3. NORVIR [Interacting]
     Indication: ACQUIRED IMMUNODEFICIENCY SYNDROME
     Dates: start: 19970514
  4. BELLERGAL [Interacting]
     Dosage: 2 DOSAGEFORM = 2 TABS

REACTIONS (10)
  - ANOREXIA [None]
  - ERGOT POISONING [None]
  - MALAISE [None]
  - MYALGIA [None]
  - NAUSEA [None]
  - NECROSIS [None]
  - PARAESTHESIA [None]
  - PULSE ABSENT [None]
  - VERTIGO [None]
  - VOMITING [None]
